FAERS Safety Report 14877022 (Version 2)
Quarter: 2025Q3

REPORT INFORMATION
  Report Type: Spontaneous
  Country: EU (occurrence: EU)
  Receive Date: 20180510
  Receipt Date: 20250811
  Transmission Date: 20251020
  Serious: Yes (Hospitalization)
  Sender: MYLAN
  Company Number: None

PATIENT
  Age: 20 Year
  Sex: Male

DRUGS (20)
  1. XANAX [Suspect]
     Active Substance: ALPRAZOLAM
     Indication: Product used for unknown indication
  2. XANAX [Suspect]
     Active Substance: ALPRAZOLAM
     Route: 065
  3. XANAX [Suspect]
     Active Substance: ALPRAZOLAM
     Route: 065
  4. XANAX [Suspect]
     Active Substance: ALPRAZOLAM
  5. MIDOMAFETAMINE [Suspect]
     Active Substance: MIDOMAFETAMINE
     Indication: Product used for unknown indication
     Dates: start: 20170610, end: 20170610
  6. MIDOMAFETAMINE [Suspect]
     Active Substance: MIDOMAFETAMINE
     Route: 065
     Dates: start: 20170610, end: 20170610
  7. MIDOMAFETAMINE [Suspect]
     Active Substance: MIDOMAFETAMINE
     Route: 065
     Dates: start: 20170610, end: 20170610
  8. MIDOMAFETAMINE [Suspect]
     Active Substance: MIDOMAFETAMINE
     Dates: start: 20170610, end: 20170610
  9. CANNABIS SATIVA SUBSP. INDICA TOP [Suspect]
     Active Substance: CANNABIS SATIVA SUBSP. INDICA TOP
     Indication: Product used for unknown indication
     Dosage: UNK, 10 TO 20 JOINTS A DAY QD
     Dates: start: 20170610, end: 20170610
  10. CANNABIS SATIVA SUBSP. INDICA TOP [Suspect]
     Active Substance: CANNABIS SATIVA SUBSP. INDICA TOP
     Dosage: UNK, 10 TO 20 JOINTS A DAY QD
     Route: 055
     Dates: start: 20170610, end: 20170610
  11. CANNABIS SATIVA SUBSP. INDICA TOP [Suspect]
     Active Substance: CANNABIS SATIVA SUBSP. INDICA TOP
     Dosage: UNK, 10 TO 20 JOINTS A DAY QD
     Route: 055
     Dates: start: 20170610, end: 20170610
  12. CANNABIS SATIVA SUBSP. INDICA TOP [Suspect]
     Active Substance: CANNABIS SATIVA SUBSP. INDICA TOP
     Dosage: UNK, 10 TO 20 JOINTS A DAY QD
     Dates: start: 20170610, end: 20170610
  13. HEROIN [Suspect]
     Active Substance: DIAMORPHINE
     Indication: Product used for unknown indication
  14. HEROIN [Suspect]
     Active Substance: DIAMORPHINE
     Route: 065
  15. HEROIN [Suspect]
     Active Substance: DIAMORPHINE
     Route: 065
  16. HEROIN [Suspect]
     Active Substance: DIAMORPHINE
  17. COCAINE [Suspect]
     Active Substance: COCAINE
     Indication: Product used for unknown indication
  18. COCAINE [Suspect]
     Active Substance: COCAINE
     Route: 065
  19. COCAINE [Suspect]
     Active Substance: COCAINE
     Route: 065
  20. COCAINE [Suspect]
     Active Substance: COCAINE

REACTIONS (5)
  - Drug dependence [Not Recovered/Not Resolved]
  - Depressed level of consciousness [Not Recovered/Not Resolved]
  - Drug abuse [Not Recovered/Not Resolved]
  - Drug abuser [Not Recovered/Not Resolved]
  - Intentional product misuse [Not Recovered/Not Resolved]

NARRATIVE: CASE EVENT DATE: 20170101
